FAERS Safety Report 6603251-0 (Version None)
Quarter: 2010Q1

REPORT INFORMATION
  Report Type: 
  Country: None (occurrence: None)
  Receive Date: 20100218
  Receipt Date: 20100205
  Transmission Date: 20100710
  Serious: Yes (Hospitalization)
  Sender: FDA-Public Use
  Company Number: 230039M08DEU

PATIENT
  Age: 40 Year
  Sex: Male

DRUGS (2)
  1. REBIF [Suspect]
     Indication: RELAPSING-REMITTING MULTIPLE SCLEROSIS
     Dosage: 44 MCG, 3 IN 1 WEEKS, SUBCUTANEOUS
     Route: 058
     Dates: end: 20080820
  2. IBUPROFEN [Concomitant]

REACTIONS (3)
  - INJECTION SITE ABSCESS [None]
  - NECROTISING FASCIITIS [None]
  - SKIN GRAFT [None]
